FAERS Safety Report 16606718 (Version 2)
Quarter: 2019Q3

REPORT INFORMATION
  Report Type: Spontaneous
  Country: US (occurrence: US)
  Receive Date: 20190722
  Receipt Date: 20190911
  Transmission Date: 20191004
  Serious: No
  Sender: FDA-Public Use
  Company Number: US-GLENMARK PHARMACEUTICALS-2019GMK041570

PATIENT

DRUGS (3)
  1. MUPIROCIN CREAM USP, 2% [Suspect]
     Active Substance: MUPIROCIN
     Dosage: UNK (ONCE EVERY OTHER DAY)
     Route: 061
  2. MUPIROCIN OINTMENT USP, 2% [Suspect]
     Active Substance: MUPIROCIN
     Indication: WOUND
     Dosage: UNK
     Route: 061
  3. MUPIROCIN CREAM USP, 2% [Suspect]
     Active Substance: MUPIROCIN
     Indication: WOUND
     Dosage: 1 DF, OD
     Route: 061

REACTIONS (4)
  - Drug effective for unapproved indication [Unknown]
  - Intentional product misuse [Unknown]
  - Wound complication [Unknown]
  - Product use in unapproved indication [Unknown]
